FAERS Safety Report 11912652 (Version 1)
Quarter: 2016Q1

REPORT INFORMATION
  Report Type: Spontaneous
  Country: US (occurrence: None)
  Receive Date: 20160112
  Receipt Date: 20160112
  Transmission Date: 20160526
  Serious: Yes (Disabling)
  Sender: FDA-Public Use
  Company Number: None

PATIENT
  Age: 79 Year
  Sex: Female
  Weight: 79.38 kg

DRUGS (11)
  1. CLOPIDOGREL [Concomitant]
     Active Substance: CLOPIDOGREL BISULFATE
  2. SUCRALFATE. [Concomitant]
     Active Substance: SUCRALFATE
  3. SYMBICORT [Concomitant]
     Active Substance: BUDESONIDE\FORMOTEROL FUMARATE DIHYDRATE
  4. DEXILANT [Concomitant]
     Active Substance: DEXLANSOPRAZOLE
  5. VIT. B-12 [Concomitant]
  6. LEVOFLOXACIN 500 MG TABLETS [Suspect]
     Active Substance: LEVOFLOXACIN
     Indication: DIVERTICULITIS
     Dosage: NEW SCRIPT  12-14-15   ... TABS  BY DRIP INTACIN- 12-3-15 BY MOUTH AFTERWARDS??65862-0537-50 D/S  ??15348364509100??AUROB ??
     Dates: start: 20151111, end: 20151128
  7. ANACORT [Concomitant]
  8. ACEBUTOLOL [Concomitant]
     Active Substance: ACEBUTOLOL
  9. AMLODIPINE [Concomitant]
     Active Substance: AMLODIPINE BESYLATE
  10. GLYCOLAX [Concomitant]
     Active Substance: POLYETHYLENE GLYCOL 3350
  11. BENADRYL [Concomitant]
     Active Substance: DIPHENHYDRAMINE HYDROCHLORIDE

REACTIONS (10)
  - Arthralgia [None]
  - Neck pain [None]
  - Back pain [None]
  - Headache [None]
  - Anal incontinence [None]
  - Arthropathy [None]
  - Peripheral swelling [None]
  - Joint swelling [None]
  - Pain in extremity [None]
  - Musculoskeletal pain [None]

NARRATIVE: CASE EVENT DATE: 20151205
